FAERS Safety Report 6159677-5 (Version None)
Quarter: 2009Q2

REPORT INFORMATION
  Report Type: 
  Country: None (occurrence: None)
  Receive Date: 20090415
  Receipt Date: 20090331
  Transmission Date: 20091009
  Serious: Yes (Disabling)
  Sender: FDA-Public Use
  Company Number: 090319-0000544

PATIENT
  Age: 10 Year
  Sex: Female

DRUGS (3)
  1. INDOCIN [Suspect]
     Indication: PATENT DUCTUS ARTERIOSUS
     Dosage: 0.1 MG/KG; QD; IVDRIP
     Route: 041
  2. FUROSEMIDE [Suspect]
     Indication: DRUG USE FOR UNKNOWN INDICATION
     Dosage: 1 MG/KG, QD; IV
     Route: 042
  3. MEFENAMIC ACID [Suspect]
     Indication: DRUG USE FOR UNKNOWN INDICATION
     Dosage: 2 MG/KG;

REACTIONS (5)
  - ATHETOSIS [None]
  - DYSTONIA [None]
  - KERNICTERUS [None]
  - LUNG DISORDER [None]
  - QUADRIPLEGIA [None]
